FAERS Safety Report 6632255-7 (Version None)
Quarter: 2010Q1

REPORT INFORMATION
  Report Type: 
  Country: None (occurrence: None)
  Receive Date: 20100312
  Receipt Date: 20100305
  Transmission Date: 20100710
  Serious: Yes (Other)
  Sender: FDA-Public Use
  Company Number: GB-B.I. PHARMACEUTICALS,INC./RIDGEFIELD-2010-UK-00157UK

PATIENT
  Age: 57 Year
  Sex: Male

DRUGS (2)
  1. MIRAPEX [Suspect]
     Indication: PARKINSON'S DISEASE
     Dosage: 4.5 MG
     Route: 002
     Dates: start: 20080205
  2. AMANTADINE HCL [Concomitant]
     Dosage: 200 MG

REACTIONS (2)
  - LIBIDO INCREASED [None]
  - OBSESSIVE-COMPULSIVE PERSONALITY DISORDER [None]
